FAERS Safety Report 22529375 (Version 3)
Quarter: 2024Q1

REPORT INFORMATION
  Report Type: Spontaneous
  Country: ES (occurrence: ES)
  Receive Date: 20230607
  Receipt Date: 20240122
  Transmission Date: 20240409
  Serious: Yes (Other)
  Sender: FDA-Public Use
  Company Number: ES-AMAROX PHARMA GMBH-AMR2023ES01015

PATIENT
  Age: 32 Year
  Sex: Female
  Weight: 60 kg

DRUGS (4)
  1. AMOXICILLIN\CLAVULANIC ACID [Suspect]
     Active Substance: AMOXICILLIN\CLAVULANIC ACID
     Indication: Urinary tract infection
     Dosage: UNK, 3 TIMES A DAY, 875/125 MILLIGRAM,ORALLY EVERY 8 H FOR 7-8 DAYS)
     Route: 048
     Dates: start: 2016
  2. AMOXICILLIN\CLAVULANIC ACID [Suspect]
     Active Substance: AMOXICILLIN\CLAVULANIC ACID
     Indication: Cystitis
     Dosage: UNK, 3 TIMES A DAY, Q8H (875/125 MG ORALLY EVERY 8 H FOR 7-8 DAYS)
     Route: 048
     Dates: start: 2020
  3. AMOXICILLIN\CLAVULANIC ACID [Suspect]
     Active Substance: AMOXICILLIN\CLAVULANIC ACID
     Indication: Drug provocation test
     Dosage: UNK
     Route: 065
     Dates: start: 202003
  4. AMOXICILLIN\CLAVULANIC ACID [Suspect]
     Active Substance: AMOXICILLIN\CLAVULANIC ACID
     Dosage: 1000 MILLIGRAM
     Route: 048

REACTIONS (1)
  - Cold urticaria [Recovered/Resolved]

NARRATIVE: CASE EVENT DATE: 20200101
